FAERS Safety Report 8488082-1 (Version None)
Quarter: 2012Q3

REPORT INFORMATION
  Report Type: 
  Country: None (occurrence: None)
  Receive Date: 20120705
  Receipt Date: 20120629
  Transmission Date: 20120928
  Serious: Yes (Hospitalization)
  Sender: FDA-Public Use
  Company Number: US-PFIZER INC-2012156908

PATIENT
  Sex: Male

DRUGS (2)
  1. NEURONTIN [Suspect]
  2. ZOLOFT [Suspect]

REACTIONS (2)
  - CHOLELITHIASIS [None]
  - ABDOMINAL PAIN UPPER [None]
